FAERS Safety Report 5886598-5 (Version None)
Quarter: 2008Q3

REPORT INFORMATION
  Report Type: 
  Country: None (occurrence: None)
  Receive Date: 20080818
  Receipt Date: 20071113
  Transmission Date: 20090109
  Serious: Yes (Hospitalization)
  Sender: FDA-Public Use
  Company Number: 20074276

PATIENT
  Sex: Male

DRUGS (1)
  1. LIORESAL [Suspect]
     Indication: MUSCLE SPASTICITY
     Dosage: 36 MCG, HOURLY, INTRATHECAL
     Route: 037

REACTIONS (4)
  - OVERDOSE [None]
  - PARAESTHESIA [None]
  - SOMNOLENCE [None]
  - URINARY RETENTION [None]
